FAERS Safety Report 4362529-4 (Version None)
Quarter: 2004Q2

REPORT INFORMATION
  Report Type: 
  Country: None (occurrence: None)
  Receive Date: 20040521
  Receipt Date: 20040513
  Transmission Date: 20050107
  Serious: Yes (Other)
  Sender: FDA-Public Use
  Company Number: US-AMGEN-US076416

PATIENT
  Sex: Male

DRUGS (3)
  1. EPOGEN [Suspect]
     Indication: PRE-EXISTING DISEASE
     Dates: start: 20031101, end: 20040401
  2. RIBAVIRIN [Concomitant]
     Dates: start: 20031101, end: 20040201
  3. PEGULATED INTERFERON ALFA-2B [Concomitant]
     Dates: start: 20031101, end: 20040401

REACTIONS (1)
  - BONE MARROW DEPRESSION [None]
